FAERS Safety Report 5656269-9 (Version None)
Quarter: 2008Q1

REPORT INFORMATION
  Report Type: 
  Country: None (occurrence: None)
  Receive Date: 20080305
  Receipt Date: 20080219
  Transmission Date: 20080703
  Serious: Yes (Other)
  Sender: FDA-Public Use
  Company Number: DSU-2008-00271

PATIENT
  Age: 30 Year
  Sex: Male

DRUGS (1)
  1. OLMETEC HCTZ 20/12.5 (HYDROCHLOROTHIAZIDE, OLMESARTAN MEDOXOMIL) (TABL [Suspect]
     Indication: BLOOD PRESSURE MANAGEMENT
     Dosage: PER ORAL
     Route: 048

REACTIONS (3)
  - BLOOD PRESSURE INCREASED [None]
  - INAPPROPRIATE SCHEDULE OF DRUG ADMINISTRATION [None]
  - TREATMENT NONCOMPLIANCE [None]
